FAERS Safety Report 18383782 (Version 2)
Quarter: 2020Q4

REPORT INFORMATION
  Report Type: Spontaneous
  Country: FR (occurrence: FR)
  Receive Date: 20201014
  Receipt Date: 20201118
  Transmission Date: 20210114
  Serious: Yes (Hospitalization)
  Sender: FDA-Public Use
  Company Number: FR-PFIZER INC-2020394229

PATIENT
  Age: 41 Year
  Sex: Female
  Weight: 64 kg

DRUGS (17)
  1. DESLORATADINE. [Concomitant]
     Active Substance: DESLORATADINE
     Dosage: UNK
     Dates: start: 20190325
  2. CAPECITABINE. [Suspect]
     Active Substance: CAPECITABINE
     Indication: TRIPLE NEGATIVE BREAST CANCER
     Dosage: UNK
     Route: 048
  3. MICROLAX [SODIUM CITRATE;SODIUM LAURYL SULFOACETATE;SORBITOL] [Concomitant]
     Active Substance: SODIUM CITRATE\SODIUM LAURYL SULFOACETATE\SORBITOL
     Dosage: UNK
     Dates: start: 20181214
  4. ONDANSETRON [Concomitant]
     Active Substance: ONDANSETRON
     Indication: PREMEDICATION
     Dosage: UNK
     Dates: start: 20181206
  5. SMEBIOCTA [Concomitant]
     Active Substance: LACTOBACILLUS PLANTARUM
     Dosage: UNK
     Dates: start: 20191129, end: 20191226
  6. TIORFAN [Concomitant]
     Active Substance: RACECADOTRIL
     Dosage: UNK
     Dates: start: 20191129, end: 20191226
  7. FLAGYL [Concomitant]
     Active Substance: METRONIDAZOLE\METRONIDAZOLE HYDROCHLORIDE
     Dosage: UNK
     Dates: start: 20191129, end: 20191203
  8. MOVICOL [Concomitant]
     Active Substance: POLYETHYLENE GLYCOL 3350\POTASSIUM CHLORIDE\SODIUM BICARBONATE\SODIUM CHLORIDE
     Dosage: UNK
     Dates: start: 20181214
  9. SPASFON [PHLOROGLUCINOL;TRIMETHYLPHLOROGLUCINOL] [Concomitant]
     Active Substance: PHLOROGLUCINOL\1,3,5-TRIMETHOXYBENZENE
     Dosage: UNK
     Dates: start: 20191129, end: 20191226
  10. SALBUTAMOL [Concomitant]
     Active Substance: ALBUTEROL
     Dates: start: 20190325
  11. KALEORID [Concomitant]
     Active Substance: POTASSIUM CHLORIDE
     Dosage: UNK
     Dates: start: 20191129, end: 20191226
  12. ATEZOLIZUMAB. [Suspect]
     Active Substance: ATEZOLIZUMAB
     Indication: TRIPLE NEGATIVE BREAST CANCER
     Dosage: UNK
     Route: 042
     Dates: start: 20181206
  13. POLARAMINE [Concomitant]
     Active Substance: DEXCHLORPHENIRAMINE MALEATE
     Indication: PREMEDICATION
     Dosage: UNK
     Dates: start: 20181206
  14. ROCEPHIN [Concomitant]
     Active Substance: CEFTRIAXONE SODIUM
     Dosage: UNK
     Dates: start: 20191129, end: 20191203
  15. RANIPLEX [RANITIDINE HYDROCHLORIDE] [Concomitant]
     Indication: PREMEDICATION
     Dosage: UNK
     Dates: start: 20181206
  16. PACLITAXEL. [Suspect]
     Active Substance: PACLITAXEL
     Indication: TRIPLE NEGATIVE BREAST CANCER
     Dosage: 90 MG/M2, WEEKLY
     Route: 042
     Dates: start: 20181206
  17. PRIMPERAN [Concomitant]
     Active Substance: METOCLOPRAMIDE HYDROCHLORIDE
     Dosage: UNK
     Dates: start: 20191129, end: 20191226

REACTIONS (1)
  - Colitis [Recovered/Resolved]

NARRATIVE: CASE EVENT DATE: 20191126
